FAERS Safety Report 8978315 (Version 1)
Quarter: 2012Q4

REPORT INFORMATION
  Report Type: Spontaneous
  Country: US (occurrence: None)
  Receive Date: 20121218
  Receipt Date: 20121218
  Transmission Date: 20130627
  Serious: Yes (Hospitalization)
  Sender: FDA-Public Use
  Company Number: None

PATIENT
  Age: 28 Year
  Sex: Female
  Weight: 63.5 kg

DRUGS (3)
  1. PRISTIQ [Suspect]
     Indication: ANTIDEPRESSANT THERAPY
     Dosage: 50 mg; 50 mg/day oral
     Route: 048
     Dates: start: 20121030, end: 20121113
  2. NECON B [Concomitant]
  3. BUPROPION [Concomitant]

REACTIONS (3)
  - Rash pruritic [None]
  - Asthma [None]
  - Drug hypersensitivity [None]
